FAERS Safety Report 20954969 (Version 3)
Quarter: 2022Q2

REPORT INFORMATION
  Report Type: Spontaneous
  Country: US (occurrence: US)
  Receive Date: 20220614
  Receipt Date: 20220627
  Transmission Date: 20220721
  Serious: Yes (Other)
  Sender: FDA-Public Use
  Company Number: US-BRISTOL-MYERS SQUIBB COMPANY-2022-039687

PATIENT
  Age: 89 Year
  Sex: Female

DRUGS (29)
  1. REVLIMID [Suspect]
     Active Substance: LENALIDOMIDE
     Indication: Myelodysplastic syndrome
     Route: 048
     Dates: start: 20220421, end: 20220611
  2. MAGNESIUM SALICYLATE [Concomitant]
     Active Substance: MAGNESIUM SALICYLATE
  3. METOLAZONE [Concomitant]
     Active Substance: METOLAZONE
  4. METOPROLOL [Concomitant]
     Active Substance: METOPROLOL
  5. MIRALAX [Concomitant]
     Active Substance: POLYETHYLENE GLYCOL 3350
  6. MONTELUKAST [Concomitant]
     Active Substance: MONTELUKAST SODIUM
  7. ONDANSETRON [Concomitant]
     Active Substance: ONDANSETRON
  8. PANTOPRAZOLE [Concomitant]
     Active Substance: PANTOPRAZOLE
  9. AMPICILLIN POTASSIUM [Concomitant]
  10. PRAMIPEXOLE [Concomitant]
     Active Substance: PRAMIPEXOLE
  11. ROSUVASTATIN [Concomitant]
     Active Substance: ROSUVASTATIN
  12. SENNA LEAF [Concomitant]
     Active Substance: SENNA LEAF
  13. XIIDRA [Concomitant]
     Active Substance: LIFITEGRAST
  14. ACETAMINOPHEN [Concomitant]
     Active Substance: ACETAMINOPHEN
  15. ALBUTEROL [Concomitant]
     Active Substance: ALBUTEROL
  16. AMITIZA [Concomitant]
     Active Substance: LUBIPROSTONE
  17. ASPIRIN [Concomitant]
     Active Substance: ASPIRIN
  18. AZELASTINE [Concomitant]
     Active Substance: AZELASTINE
  19. AZITHROMYCIN [Concomitant]
     Active Substance: AZITHROMYCIN
  20. TRUST DICLOFENAC GEL [Concomitant]
  21. DOCUSATE [Concomitant]
     Active Substance: DOCUSATE
  22. FLUTICASONE [Concomitant]
     Active Substance: FLUTICASONE
  23. SALMETEROL [Concomitant]
     Active Substance: SALMETEROL
  24. FUROSEMIDE [Concomitant]
     Active Substance: FUROSEMIDE
  25. NORCO [Concomitant]
     Active Substance: ACETAMINOPHEN\HYDROCODONE BITARTRATE
  26. LIDOCAINE [Concomitant]
     Active Substance: LIDOCAINE
  27. LORATADINE [Concomitant]
     Active Substance: LORATADINE
  28. POTASSIUM [Concomitant]
     Active Substance: POTASSIUM
     Indication: Product used for unknown indication
  29. ADVAIR HFA [Concomitant]
     Active Substance: FLUTICASONE PROPIONATE\SALMETEROL XINAFOATE
     Indication: Product used for unknown indication

REACTIONS (4)
  - Platelet count decreased [Unknown]
  - Cough [Unknown]
  - Peripheral swelling [Unknown]
  - Red blood cell count decreased [Unknown]

NARRATIVE: CASE EVENT DATE: 20220425
